FAERS Safety Report 4852327-7 (Version None)
Quarter: 2005Q4

REPORT INFORMATION
  Report Type: 
  Country: None (occurrence: None)
  Receive Date: 20051213
  Receipt Date: 20050617
  Transmission Date: 20060501
  Serious: Yes (Other)
  Sender: FDA-Public Use
  Company Number: US-ROCHE-408665

PATIENT
  Sex: Female
  Weight: 3.3 kg

DRUGS (3)
  1. ACCUTANE [Suspect]
     Indication: ACNE
     Dates: start: 19961111, end: 19970206
  2. ARAVA [Concomitant]
     Indication: RHEUMATOID ARTHRITIS
     Dates: start: 20010608, end: 20030904
  3. MERCAPTOPURINE [Concomitant]
     Dates: end: 20030918

REACTIONS (6)
  - CONSTIPATION [None]
  - DRUG EXPOSURE DURING PREGNANCY [None]
  - EMOTIONAL DISTRESS [None]
  - PREGNANCY [None]
  - RHEUMATOID ARTHRITIS [None]
  - UMBILICAL CORD AROUND NECK [None]
